FAERS Safety Report 5545399-8 (Version None)
Quarter: 2007Q4

REPORT INFORMATION
  Report Type: 
  Country: None (occurrence: None)
  Receive Date: 20071211
  Receipt Date: 20071203
  Transmission Date: 20080405
  Serious: Yes (Death, Hospitalization)
  Sender: FDA-Public Use
  Company Number: GB-ELI_LILLY_AND_COMPANY-GB200712000799

PATIENT
  Age: 81 Year
  Sex: Male

DRUGS (5)
  1. OLANZAPINE [Suspect]
  2. RISPERIDONE [Concomitant]
  3. SEROQUEL [Concomitant]
  4. ANTIPSYCHOTICS [Concomitant]
  5. ANTIDEPRESSANTS [Concomitant]

REACTIONS (6)
  - AGITATION [None]
  - COMA [None]
  - COMMUNICATION DISORDER [None]
  - DEATH [None]
  - DISTURBANCE IN ATTENTION [None]
  - HOSPITALISATION [None]
